FAERS Safety Report 8602452 (Version 3)
Quarter: 2012Q4

REPORT INFORMATION
  Report Type: 
  Country: FR (occurrence: FR)
  Receive Date: 20120607
  Receipt Date: 20120913
  Transmission Date: 20130627
  Serious: Yes (Life-Threatening, Hospitalization)
  Sender: FDA-Public Use
  Company Number: FR-NOVOPROD-352947

PATIENT
  Age: 31 Year
  Sex: Female

DRUGS (18)
  1. NOVOSEVEN [Suspect]
     Indication: THIRD STAGE POSTPARTUM HAEMORRHAGE
     Dosage: 4 mg, qd
     Route: 042
     Dates: start: 20120108, end: 20120108
  2. EPHEDRINE [Suspect]
     Indication: SPINAL ANAESTHESIA
     Dosage: 60 mg, qd
     Route: 042
     Dates: start: 20120108, end: 20120108
  3. EXACYL [Suspect]
     Indication: POSTPARTUM HAEMORRHAGE
     Dosage: 4 g, qd
     Route: 042
     Dates: start: 20120108, end: 20120108
  4. TAGAMET [Suspect]
     Indication: SPINAL ANAESTHESIA
     Dosage: 400 mg, qd
     Dates: start: 20120108, end: 20120108
  5. BUPIVACAINE AGUETTANT [Suspect]
     Indication: SPINAL ANAESTHESIA
     Dosage: 10 mg, qd
     Route: 008
     Dates: start: 20120108, end: 20120108
  6. PABAL [Suspect]
     Indication: UTERINE ATONY
     Dosage: 100 ?g, qd
     Route: 042
     Dates: start: 20120108, end: 20120108
  7. CEFAZOLINE [Suspect]
     Indication: ANTIBIOTIC PROPHYLAXIS
     Dosage: once daily
     Route: 042
     Dates: start: 20120108, end: 20120108
  8. CLOTTAFACT [Suspect]
     Indication: THIRD STAGE POSTPARTUM HAEMORRHAGE
     Dosage: 6 g, qd
     Route: 042
     Dates: start: 20120108, end: 20120108
  9. NALADOR [Suspect]
     Indication: PRODUCT USED FOR UNKNOWN INDICATION
     Dosage: 1000 ?g, qd
     Route: 042
     Dates: start: 20120108, end: 20120108
  10. SEVOFLURANE [Suspect]
     Indication: ANAESTHESIA
     Dosage: UNK
     Route: 055
     Dates: start: 20120108, end: 20120108
  11. CELOCURINE [Concomitant]
     Indication: ENDOTRACHEAL INTUBATION
     Dosage: UNK
     Route: 042
     Dates: start: 20120108, end: 20120108
  12. TRACRIUM [Concomitant]
     Indication: ANAESTHESIA
     Dosage: UNK
     Route: 042
     Dates: start: 20120108, end: 20120108
  13. DIPRIVAN [Concomitant]
     Dosage: UNK
     Route: 042
     Dates: start: 20120108, end: 20120108
  14. NEOSYNEPHRINE [Concomitant]
     Indication: SPINAL ANAESTHESIA
  15. VOLUVEN [Concomitant]
     Indication: POSTPARTUM HAEMORRHAGE
  16. RED BLOOD CELLS [Concomitant]
  17. PLASMA, FRESH FROZEN [Concomitant]
     Indication: THIRD STAGE POSTPARTUM HAEMORRHAGE
     Dosage: 3 packs of fresh frozen plasma
  18. PLATELETS, CONCENTRATED [Concomitant]
     Indication: THIRD STAGE POSTPARTUM HAEMORRHAGE

REACTIONS (5)
  - Renal failure acute [Unknown]
  - Dialysis [Recovered/Resolved]
  - Enterobacter infection [None]
  - Urinary tract infection [None]
  - Anaemia [None]
